FAERS Safety Report 6332437-8 (Version None)
Quarter: 2009Q3

REPORT INFORMATION
  Report Type: 
  Country: None (occurrence: None)
  Receive Date: 20090828
  Receipt Date: 20090818
  Transmission Date: 20100115
  Serious: Yes (Death)
  Sender: FDA-Public Use
  Company Number: KR-PFIZER INC-2009233195

PATIENT
  Age: 54 Year

DRUGS (18)
  1. VORICONAZOLE [Suspect]
     Indication: ASPERGILLOSIS
     Dosage: 360 MG, 2X/DAY
     Route: 042
     Dates: start: 20080517, end: 20080517
  2. VORICONAZOLE [Suspect]
     Dosage: 248 MG, 2X/DAY
     Route: 042
     Dates: start: 20080518, end: 20080518
  3. VORICONAZOLE [Suspect]
     Dosage: 256 MG, 2X/DAY
     Route: 042
     Dates: start: 20080519, end: 20080519
  4. VORICONAZOLE [Suspect]
     Dosage: 270 MG, 2X/DAY
     Route: 042
     Dates: start: 20080520, end: 20080520
  5. VORICONAZOLE [Suspect]
     Dosage: 276 MG, 2X/DAY
     Route: 042
     Dates: start: 20080521, end: 20080521
  6. VORICONAZOLE [Suspect]
     Dosage: 280 MG, 2X/DAY
     Route: 042
     Dates: start: 20080522, end: 20080523
  7. VORICONAZOLE [Suspect]
     Dosage: 281.6 MG, 2X/DAY
     Route: 042
     Dates: start: 20080524, end: 20080524
  8. VORICONAZOLE [Suspect]
     Dosage: 280 MG, 2X/DAY
     Route: 042
     Dates: start: 20080525, end: 20080527
  9. VORICONAZOLE [Suspect]
     Dosage: 274 MG, 2X/DAY
     Route: 042
     Dates: start: 20080528, end: 20080528
  10. VORICONAZOLE [Suspect]
     Dosage: 270 MG, 2X/DAY
     Route: 042
     Dates: start: 20080529, end: 20080529
  11. VORICONAZOLE [Suspect]
     Dosage: 272 MG, 2X/DAY
     Route: 042
     Dates: start: 20080530, end: 20080531
  12. VORICONAZOLE [Suspect]
     Dosage: 268.8 MG, 2X/DAY
     Route: 042
     Dates: start: 20080601, end: 20080601
  13. VORICONAZOLE [Suspect]
     Dosage: 260 MG, 2X/DAY
     Route: 042
     Dates: start: 20080602, end: 20080602
  14. VANCOMYCIN [Concomitant]
     Indication: PYREXIA
     Dosage: UNK
     Route: 042
     Dates: start: 20080509, end: 20080602
  15. MEROPENEM [Concomitant]
     Indication: PYREXIA
     Dosage: UNK
     Route: 042
     Dates: start: 20080517, end: 20080602
  16. AMPICILLIN [Concomitant]
     Indication: PYREXIA
     Dosage: UNK
     Route: 042
     Dates: start: 20080514, end: 20080519
  17. AMBROXOL [Concomitant]
     Indication: PRODUCTIVE COUGH
     Dosage: UNK
     Route: 042
     Dates: start: 20080522, end: 20080602
  18. DOMPERIDONE [Concomitant]
     Indication: DYSPEPSIA
     Dosage: UNK
     Route: 042
     Dates: start: 20080521, end: 20080602

REACTIONS (2)
  - ACIDOSIS [None]
  - RESPIRATORY FAILURE [None]
